FAERS Safety Report 5060407-9 (Version None)
Quarter: 2006Q3

REPORT INFORMATION
  Report Type: 
  Country: None (occurrence: None)
  Receive Date: 20060725
  Receipt Date: 20060306
  Transmission Date: 20061208
  Serious: Yes (Hospitalization)
  Sender: FDA-Public Use
  Company Number: PHEH2006US03065

PATIENT
  Age: 68 Year
  Sex: Male

DRUGS (5)
  1. STALEVO 100 [Suspect]
     Indication: PARKINSON'S DISEASE
     Dosage: 150 MG, TID
     Dates: start: 20040101
  2. LITHIUM CARBONATE [Concomitant]
     Dosage: 600 MG, BID
     Dates: end: 20060201
  3. LITHIUM CARBONATE [Concomitant]
     Dosage: 300 MG, BID
     Dates: start: 20060209
  4. WELLBUTRIN [Concomitant]
     Dosage: 100 MG, QD
     Dates: end: 20060201
  5. WELLBUTRIN [Concomitant]
     Dosage: 100 MG, BID
     Dates: start: 20060209

REACTIONS (7)
  - APHASIA [None]
  - FALL [None]
  - GENERAL PHYSICAL HEALTH DETERIORATION [None]
  - GRIP STRENGTH DECREASED [None]
  - HEAD INJURY [None]
  - VOMITING [None]
  - WEIGHT DECREASED [None]
